FAERS Safety Report 17895629 (Version 1)
Quarter: 2020Q2

REPORT INFORMATION
  Report Type: Spontaneous
  Country: US (occurrence: US)
  Receive Date: 20200612
  Receipt Date: 20200612
  Transmission Date: 20200714
  Serious: Yes (Death, Hospitalization)
  Sender: FDA-Public Use
  Company Number: None

PATIENT
  Age: 58 Year
  Sex: Female

DRUGS (13)
  1. OPSUMIT [Suspect]
     Active Substance: MACITENTAN
     Indication: PULMONARY HYPERTENSION
     Route: 048
     Dates: start: 201808, end: 202005
  2. NIFEDIPINE. [Concomitant]
     Active Substance: NIFEDIPINE
  3. DIGOXIN. [Concomitant]
     Active Substance: DIGOXIN
  4. VITRON-C IRON [Concomitant]
  5. SENNA [Concomitant]
     Active Substance: SENNA LEAF\SENNOSIDES\SENNOSIDES A AND B
  6. ATORVASTATIN [Concomitant]
     Active Substance: ATORVASTATIN
  7. TORSEMIDE. [Concomitant]
     Active Substance: TORSEMIDE
  8. FLONASE [Concomitant]
     Active Substance: FLUTICASONE PROPIONATE
  9. VENTOLIN HFA [Concomitant]
     Active Substance: ALBUTEROL SULFATE
  10. CELLCEPT [Concomitant]
     Active Substance: MYCOPHENOLATE MOFETIL\MYCOPHENOLATE MOFETIL HYDROCHLORIDE
  11. RANITIDINE. [Concomitant]
     Active Substance: RANITIDINE
  12. K-TAB [Concomitant]
     Active Substance: POTASSIUM CHLORIDE
  13. MIRALAX [Concomitant]
     Active Substance: POLYETHYLENE GLYCOL 3350

REACTIONS (11)
  - Cough [None]
  - Respiratory failure [None]
  - Dyspnoea [None]
  - Acute kidney injury [None]
  - Acute myocardial infarction [None]
  - Back pain [None]
  - Metabolic acidosis [None]
  - Pulmonary embolism [None]
  - Cardiac arrest [None]
  - Rhinorrhoea [None]
  - Ear pain [None]

NARRATIVE: CASE EVENT DATE: 20200525
